FAERS Safety Report 16485522 (Version 1)
Quarter: 2019Q2

REPORT INFORMATION
  Report Type: Spontaneous
  Country: US (occurrence: US)
  Receive Date: 20190517
  Receipt Date: 20190517
  Transmission Date: 20190711
  Serious: No
  Sender: FDA-Public Use
  Company Number: None

PATIENT
  Sex: Female

DRUGS (2)
  1. SUTENT [Suspect]
     Active Substance: SUNITINIB MALATE
     Indication: CHOLANGIOCARCINOMA
     Route: 048
     Dates: start: 20180730, end: 20190509
  2. SUTENT [Suspect]
     Active Substance: SUNITINIB MALATE
     Indication: METASTASES TO LIVER
     Route: 048
     Dates: start: 20180730, end: 20190509

REACTIONS (4)
  - Neoplasm malignant [None]
  - Yellow skin [None]
  - Madarosis [None]
  - Hair colour changes [None]
